FAERS Safety Report 8475357-5 (Version None)
Quarter: 2012Q2

REPORT INFORMATION
  Report Type: 
  Country: None (occurrence: None)
  Receive Date: 20120628
  Receipt Date: 20120619
  Transmission Date: 20120825
  Serious: Yes (Hospitalization)
  Sender: FDA-Public Use
  Company Number: IT-JNJFOC-20120110447

PATIENT
  Age: 50 Year
  Sex: Female

DRUGS (5)
  1. TEGRETOL [Suspect]
     Indication: EPILEPSY
     Route: 048
     Dates: start: 20120124, end: 20120124
  2. TEGRETOL [Suspect]
     Route: 048
  3. VALIUM [Suspect]
     Indication: SUICIDE ATTEMPT
     Route: 048
     Dates: start: 20120124, end: 20120124
  4. TOPAMAX [Suspect]
     Indication: EPILEPSY
     Route: 048
  5. TOPAMAX [Suspect]
     Route: 048
     Dates: start: 20120124, end: 20120124

REACTIONS (4)
  - MULTIPLE DRUG OVERDOSE INTENTIONAL [None]
  - BLUNTED AFFECT [None]
  - SLOW SPEECH [None]
  - SELF INJURIOUS BEHAVIOUR [None]
